FAERS Safety Report 9559225 (Version 1)
Quarter: 2013Q3

REPORT INFORMATION
  Report Type: Spontaneous
  Country: US (occurrence: None)
  Receive Date: 20130906
  Receipt Date: 20130906
  Transmission Date: 20140515
  Serious: No
  Sender: FDA-Public Use
  Company Number: 163-POMAL-13051729

PATIENT
  Age: 65 Year
  Sex: Male
  Weight: 99.79 kg

DRUGS (5)
  1. POMALYST [Suspect]
     Indication: PLASMA CELL MYELOMA
     Dosage: 4 MG, 21 IN 28 D
     Route: 048
     Dates: start: 201304, end: 20130504
  2. DEXAMETHASONE [Concomitant]
  3. ATENOLOL [Concomitant]
  4. MONTELUKAST [Concomitant]
  5. ACYCLOVIR [Concomitant]

REACTIONS (4)
  - Erythema [None]
  - Gastric disorder [None]
  - Diarrhoea [None]
  - Rash [None]
